FAERS Safety Report 4886096-1 (Version None)
Quarter: 2006Q1

REPORT INFORMATION
  Report Type: 
  Country: None (occurrence: None)
  Receive Date: 20060118
  Receipt Date: 20060118
  Transmission Date: 20060701
  Serious: Yes (Hospitalization)
  Sender: FDA-Public Use
  Company Number: None

PATIENT
  Age: 82 Year
  Sex: Female
  Weight: 81 kg

DRUGS (10)
  1. VOLTAREN [Suspect]
     Dosage: 2.5 MG PO BID
     Route: 048
  2. ASPIRIN [Suspect]
     Dosage: 3.25 MG QD
  3. ZESTORETIC [Concomitant]
  4. ZANTAC [Concomitant]
  5. PREMARIN [Concomitant]
  6. POTASSIUM [Concomitant]
  7. GLYBURIDE [Concomitant]
  8. GLUCOPHAGE [Concomitant]
  9. LASIX [Concomitant]
  10. CALCIUM GLUCONATE [Concomitant]

REACTIONS (4)
  - DUODENAL ULCER [None]
  - HAEMOGLOBIN DECREASED [None]
  - MELAENA [None]
  - OCCULT BLOOD POSITIVE [None]
